FAERS Safety Report 10028409 (Version 1)
Quarter: 2014Q1

REPORT INFORMATION
  Report Type: Spontaneous
  Country: DE (occurrence: None)
  Receive Date: 20140319
  Receipt Date: 20140319
  Transmission Date: 20141002
  Serious: Yes (Hospitalization)
  Sender: FDA-Public Use
  Company Number: 1403-0512

PATIENT
  Age: 64 Year
  Sex: Male

DRUGS (1)
  1. EYLEA  (AFLIBERCEPT) [Suspect]
     Indication: AGE-RELATED MACULAR DEGENERATION
     Dosage: 1 IN 2 M
     Dates: start: 20130313

REACTIONS (3)
  - Vestibular disorder [None]
  - Vestibular neuronitis [None]
  - Hearing impaired [None]
